FAERS Safety Report 4602282-X (Version None)
Quarter: 2005Q1

REPORT INFORMATION
  Report Type: 
  Country: None (occurrence: None)
  Receive Date: 20050215
  Receipt Date: 20041029
  Transmission Date: 20050727
  Serious: No
  Sender: FDA-Public Use
  Company Number: 381814

PATIENT
  Age: 47 Year
  Sex: Female
  Weight: 141.1 kg

DRUGS (7)
  1. PEGASYS [Suspect]
     Indication: HEPATITIS C VIRUS
     Dosage: 180 MCG 1 PER WEEK SUBCUTANEOUS
     Route: 058
     Dates: start: 20040305
  2. COPEGUS [Concomitant]
  3. GLUCOPHAGE [Concomitant]
  4. CLONIDINE [Concomitant]
  5. ALBUTEROL [Concomitant]
  6. METHADONE (METHADONE) [Concomitant]
  7. LASIX [Concomitant]

REACTIONS (1)
  - PLATELET COUNT DECREASED [None]
